FAERS Safety Report 9787842 (Version 5)
Quarter: 2014Q1

REPORT INFORMATION
  Report Type: Spontaneous
  Country: US (occurrence: US)
  Receive Date: 20131230
  Receipt Date: 20140121
  Transmission Date: 20141002
  Serious: Yes (Other)
  Sender: FDA-Public Use
  Company Number: US-PFIZER INC-2013373125

PATIENT
  Age: 51 Year
  Sex: Female
  Weight: 65.76 kg

DRUGS (4)
  1. EFFEXOR XR [Suspect]
     Indication: DEPRESSION
     Dosage: 5 CAPSULES OF 75MG TO GET A TOTAL DAILY DOSE OF 375MG
     Dates: end: 2013
  2. EFFEXOR XR [Suspect]
     Dosage: 4 CAPSULES
     Dates: start: 2013, end: 2013
  3. EFFEXOR XR [Suspect]
     Dosage: TWO CAPSULE A DAY OF 75MG
     Dates: start: 2013, end: 2013
  4. EFFEXOR XR [Suspect]
     Dosage: TWO OR ONE CAPSULES A DAY OF 75MG
     Dates: start: 2013

REACTIONS (8)
  - Pain [Unknown]
  - Gait disturbance [Unknown]
  - Speech disorder [Unknown]
  - Crying [Unknown]
  - Feeling abnormal [Unknown]
  - Withdrawal syndrome [Unknown]
  - Drug ineffective [Unknown]
  - Incorrect dose administered [Unknown]
